FAERS Safety Report 7241899-3 (Version None)
Quarter: 2011Q1

REPORT INFORMATION
  Report Type: 
  Country: None (occurrence: None)
  Receive Date: 20110124
  Receipt Date: 20110111
  Transmission Date: 20110831
  Serious: Yes (Death)
  Sender: FDA-Public Use
  Company Number: US-CELGENEUS-163-20785-10122946

PATIENT
  Sex: Female

DRUGS (2)
  1. THALOMID [Suspect]
     Route: 048
     Dates: start: 20060530
  2. THALOMID [Suspect]
     Indication: MYELOID METAPLASIA
     Route: 048
     Dates: start: 20050601

REACTIONS (2)
  - MYELOID METAPLASIA [None]
  - PNEUMONIA ASPIRATION [None]
